FAERS Safety Report 9096001 (Version 3)
Quarter: 2014Q1

REPORT INFORMATION
  Report Type: Report from Study
  Country: CA (occurrence: CA)
  Receive Date: 20130207
  Receipt Date: 20140307
  Transmission Date: 20141002
  Serious: Yes (Hospitalization)
  Sender: FDA-Public Use
  Company Number: CA-JNJFOC-20130116776

PATIENT
  Age: 54 Year
  Sex: Female
  Weight: 56.7 kg

DRUGS (1)
  1. REMICADE [Suspect]
     Indication: ANKYLOSING SPONDYLITIS
     Dosage: DOSE: PREVIOUSLY REPORTED AS 400 MG
     Route: 042
     Dates: start: 20111118, end: 20130507

REACTIONS (5)
  - Uterine neoplasm [Unknown]
  - Cervix carcinoma [Unknown]
  - Metastases to lung [Unknown]
  - Metastases to liver [Unknown]
  - Lung neoplasm malignant [Unknown]
